FAERS Safety Report 5369934-8 (Version None)
Quarter: 2007Q2

REPORT INFORMATION
  Report Type: 
  Country: None (occurrence: None)
  Receive Date: 20070621
  Receipt Date: 20070608
  Transmission Date: 20071010
  Serious: Yes (Death)
  Sender: FDA-Public Use
  Company Number: 16791

PATIENT
  Age: 62 Year
  Sex: Male

DRUGS (6)
  1. VINCRISTINE [Suspect]
     Indication: METASTASES TO BONE
  2. VINCRISTINE [Suspect]
     Indication: SMALL CELL LUNG CANCER METASTATIC
  3. CYCLOPHOSPHAMIDE [Suspect]
     Indication: METASTASES TO BONE
  4. CYCLOPHOSPHAMIDE [Suspect]
     Indication: SMALL CELL LUNG CANCER METASTATIC
  5. ADRIAMYCIN PFS [Suspect]
     Indication: METASTASES TO BONE
  6. ADRIAMYCIN PFS [Suspect]
     Indication: SMALL CELL LUNG CANCER METASTATIC

REACTIONS (16)
  - C-REACTIVE PROTEIN INCREASED [None]
  - CITROBACTER INFECTION [None]
  - ENTEROBACTER INFECTION [None]
  - ENTEROCOCCAL INFECTION [None]
  - FLATULENCE [None]
  - GASTRIC DILATATION [None]
  - GASTRITIS [None]
  - HYPOTENSION [None]
  - MALIGNANT NEOPLASM PROGRESSION [None]
  - PERITONITIS [None]
  - PNEUMATOSIS INTESTINALIS [None]
  - SEPTIC SHOCK [None]
  - SPLENIC INFARCTION [None]
  - TACHYCARDIA [None]
  - TACHYPNOEA [None]
  - WHITE BLOOD CELL COUNT INCREASED [None]
